FAERS Safety Report 5930644-7 (Version None)
Quarter: 2008Q4

REPORT INFORMATION
  Report Type: 
  Country: None (occurrence: None)
  Receive Date: 20081027
  Receipt Date: 20081017
  Transmission Date: 20090506
  Serious: Yes (Hospitalization)
  Sender: FDA-Public Use
  Company Number: US-JNJFOC-20081004603

PATIENT
  Sex: Female

DRUGS (9)
  1. DURAGESIC-100 [Suspect]
     Route: 062
  2. DURAGESIC-100 [Suspect]
     Indication: FIBROMYALGIA
     Route: 062
  3. FLEXERIL [Suspect]
     Indication: MUSCLE SPASMS
     Route: 048
  4. VICODIN [Concomitant]
     Indication: PAIN
  5. ALLEGRA-D [Concomitant]
     Indication: MULTIPLE ALLERGIES
     Route: 048
  6. NAPROXEN [Concomitant]
     Indication: DYSMENORRHOEA
     Route: 048
  7. IMITREX [Concomitant]
     Indication: MIGRAINE
  8. UNKNOWN MEDICATION [Concomitant]
     Indication: PAIN
  9. ZOVIA 1/35E-21 [Concomitant]
     Indication: MENSTRUATION IRREGULAR
     Route: 048

REACTIONS (13)
  - CHEST PAIN [None]
  - COLD SWEAT [None]
  - COSTOCHONDRITIS [None]
  - DYSPNOEA [None]
  - FAECAL INCONTINENCE [None]
  - FOOD POISONING [None]
  - INCORRECT DRUG ADMINISTRATION DURATION [None]
  - LOGORRHOEA [None]
  - MIGRAINE [None]
  - PILOERECTION [None]
  - PULMONARY CONGESTION [None]
  - URINARY INCONTINENCE [None]
  - WITHDRAWAL SYNDROME [None]
